FAERS Safety Report 16510645 (Version 1)
Quarter: 2019Q3

REPORT INFORMATION
  Report Type: Spontaneous
  Country: US (occurrence: US)
  Receive Date: 20190701
  Receipt Date: 20190701
  Transmission Date: 20191004
  Serious: Yes (Death)
  Sender: FDA-Public Use
  Company Number: None

PATIENT
  Age: 55 Year
  Sex: Male
  Weight: 113 kg

DRUGS (1)
  1. AXICABTAGENE CILOLEUCEL [Suspect]
     Active Substance: AXICABTAGENE CILOLEUCEL
     Indication: DIFFUSE LARGE B-CELL LYMPHOMA
     Dosage: ?          OTHER FREQUENCY:ONCE;?
     Route: 042
     Dates: start: 20190520, end: 20190520

REACTIONS (10)
  - Dyspnoea [None]
  - Acute kidney injury [None]
  - Hypotension [None]
  - Tumour lysis syndrome [None]
  - Cardio-respiratory arrest [None]
  - Cytokine release syndrome [None]
  - Neurotoxicity [None]
  - Blood uric acid increased [None]
  - Drug hypersensitivity [None]
  - Blood fibrinogen increased [None]

NARRATIVE: CASE EVENT DATE: 20190521
